FAERS Safety Report 25751405 (Version 1)
Quarter: 2025Q3

REPORT INFORMATION
  Report Type: Spontaneous
  Country: IN (occurrence: IN)
  Receive Date: 20250902
  Receipt Date: 20250902
  Transmission Date: 20251021
  Serious: Yes (Hospitalization, Other)
  Sender: PFIZER
  Company Number: IN-PFIZER INC-PV202500103918

PATIENT
  Age: 39 Year
  Sex: Female

DRUGS (1)
  1. LORLATINIB [Suspect]
     Active Substance: LORLATINIB
     Indication: Lung adenocarcinoma stage IV
     Dosage: 100 MG, 1X/DAY
     Route: 048

REACTIONS (6)
  - Gastroenteritis [Unknown]
  - Pulmonary embolism [Unknown]
  - Abdominal pain [Unknown]
  - Dyspnoea [Unknown]
  - Diarrhoea [Unknown]
  - Haemoglobin decreased [Unknown]

NARRATIVE: CASE EVENT DATE: 20250817
